FAERS Safety Report 6731256-8 (Version None)
Quarter: 2010Q2

REPORT INFORMATION
  Report Type: 
  Country: None (occurrence: None)
  Receive Date: 20100517
  Receipt Date: 20100517
  Transmission Date: 20101027
  Serious: Yes (Hospitalization)
  Sender: FDA-Public Use
  Company Number: None

PATIENT
  Sex: Male
  Weight: 78.9 kg

DRUGS (3)
  1. FLUOROURACIL [Suspect]
     Dosage: 4865
     Dates: end: 20081205
  2. LEUCOVORIN CALCIUM [Suspect]
     Dosage: 790 MG
     Dates: end: 20081205
  3. ELOXATIN [Suspect]
     Dosage: 168 MG
     Dates: end: 20081205

REACTIONS (4)
  - FALL [None]
  - HYPERHIDROSIS [None]
  - HYPOGLYCAEMIA [None]
  - TREMOR [None]
